FAERS Safety Report 26002827 (Version 1)
Quarter: 2025Q4

REPORT INFORMATION
  Report Type: Spontaneous
  Country: US (occurrence: US)
  Receive Date: 20251106
  Receipt Date: 20251106
  Transmission Date: 20260117
  Serious: Yes (Other)
  Sender: SANOFI AVENTIS
  Company Number: US-SA-2025SA327858

PATIENT
  Sex: Male

DRUGS (1)
  1. DUPIXENT [Suspect]
     Active Substance: DUPILUMAB
     Indication: Chronic obstructive pulmonary disease
     Dosage: 300 MG, QOW
     Route: 058
     Dates: start: 20241030

REACTIONS (4)
  - Pneumonia [Recovering/Resolving]
  - Asthenia [Recovering/Resolving]
  - Pulmonary congestion [Recovering/Resolving]
  - Pulmonary oedema [Recovering/Resolving]
